FAERS Safety Report 4888411-1 (Version None)
Quarter: 2006Q1

REPORT INFORMATION
  Report Type: 
  Country: None (occurrence: None)
  Receive Date: 20060119
  Receipt Date: 20060116
  Transmission Date: 20060701
  Serious: Yes (Hospitalization)
  Sender: FDA-Public Use
  Company Number: S06-USA-00178-01

PATIENT
  Age: 65 Year
  Sex: Female

DRUGS (2)
  1. LEXAPRO [Suspect]
     Indication: DEPRESSION
     Dosage: 10 MG PO
     Route: 048
     Dates: start: 20051101, end: 20051208
  2. LEXAPRO [Suspect]
     Indication: DEPRESSION
     Dosage: 10 MG QD PO
     Route: 048
     Dates: start: 20030101, end: 20051101

REACTIONS (6)
  - ASTHENIA [None]
  - BLOOD MAGNESIUM DECREASED [None]
  - BRONCHITIS [None]
  - FEELING ABNORMAL [None]
  - HYPONATRAEMIA [None]
  - TREMOR [None]
